FAERS Safety Report 10011685 (Version 1)
Quarter: 2014Q1

REPORT INFORMATION
  Report Type: Spontaneous
  Country: TR (occurrence: TR)
  Receive Date: 20140314
  Receipt Date: 20140314
  Transmission Date: 20141002
  Serious: Yes (Death)
  Sender: FDA-Public Use
  Company Number: PHHY2014TR029743

PATIENT
  Sex: Male
  Weight: 3.51 kg

DRUGS (6)
  1. OCTREOTIDE [Suspect]
     Indication: HYPOGLYCAEMIA
     Dosage: 25 MG/KG, PER DAY
  2. OCTREOTIDE [Suspect]
     Indication: OFF LABEL USE
  3. DIAZOXIDE [Suspect]
     Indication: HYPOGLYCAEMIA
     Dosage: 20 MG/KG, DAY
  4. DIAZOXIDE [Suspect]
     Dosage: 15 MG/KG, DAY
  5. GLUCOSE [Concomitant]
     Dosage: 20 MG/KG, PER MINUTE
     Route: 041
  6. GLUCOSE [Concomitant]
     Dosage: 8 MG/KG, PER MINUTE
     Route: 041

REACTIONS (3)
  - Post procedural complication [Fatal]
  - Procedural complication [Fatal]
  - Drug ineffective [Unknown]
